FAERS Safety Report 9193226 (Version 1)
Quarter: 2013Q1

REPORT INFORMATION
  Report Type: Spontaneous
  Country: US (occurrence: US)
  Receive Date: 20130327
  Receipt Date: 20130327
  Transmission Date: 20140127
  Serious: No
  Sender: FDA-Public Use
  Company Number: US-PFIZER INC-2013098961

PATIENT
  Age: 52 Year
  Sex: Female
  Weight: 65.31 kg

DRUGS (8)
  1. GABAPENTIN [Suspect]
     Dosage: UNK
  2. LISINOPRIL [Concomitant]
     Dosage: 5 MG, 1X/DAY
  3. RELPAX [Concomitant]
     Indication: MIGRAINE
     Dosage: 40 MG, UNK
  4. PROTONIX [Concomitant]
     Dosage: 40 MG, 1X/DAY
  5. TRAMADOL [Concomitant]
     Dosage: 50 MG, 1X/DAY
  6. BENADRYL [Concomitant]
     Indication: EYE DISORDER
     Dosage: 25 MG, 4X/DAY
     Route: 048
  7. PROMETHAZINE [Concomitant]
     Indication: NAUSEA
     Dosage: 25 MG, UNK
  8. PREDNISOLONE [Concomitant]
     Indication: EYE DISORDER
     Dosage: TWO DROPS, 2X/DAY

REACTIONS (1)
  - Drug intolerance [Unknown]
